FAERS Safety Report 23916479 (Version 3)
Quarter: 2024Q2

REPORT INFORMATION
  Report Type: Spontaneous
  Country: US (occurrence: US)
  Receive Date: 20240529
  Receipt Date: 20240624
  Transmission Date: 20240715
  Serious: No
  Sender: FDA-Public Use
  Company Number: US-Calliditas-2024CAL00827

PATIENT
  Age: 62 Year
  Sex: Female
  Weight: 85.2 kg

DRUGS (1)
  1. TARPEYO [Suspect]
     Active Substance: BUDESONIDE
     Indication: IgA nephropathy
     Route: 048
     Dates: start: 20240503

REACTIONS (12)
  - Oropharyngeal pain [Unknown]
  - Oral pain [Unknown]
  - Throat irritation [Unknown]
  - Sciatica [Unknown]
  - Emotional disorder [Unknown]
  - Energy increased [Unknown]
  - Thirst [Unknown]
  - Dry mouth [Unknown]
  - Dysphonia [Unknown]
  - Dyspepsia [Unknown]
  - Eructation [Unknown]
  - Vomiting [Unknown]
